FAERS Safety Report 4265671-1 (Version None)
Quarter: 2004Q1

REPORT INFORMATION
  Report Type: 
  Country: None (occurrence: None)
  Receive Date: 20040107
  Receipt Date: 20030624
  Transmission Date: 20041129
  Serious: Yes (Death, Life-Threatening)
  Sender: FDA-Public Use
  Company Number: JP-GLAXOSMITHKLINE-B0302907A

PATIENT
  Age: 65 Year
  Sex: Male
  Weight: 63 kg

DRUGS (16)
  1. MELPHALAN [Suspect]
     Indication: STEM CELL TRANSPLANT
     Dosage: 170MG PER DAY
     Route: 042
     Dates: start: 20021126, end: 20021126
  2. FLUDARA [Suspect]
     Indication: STEM CELL TRANSPLANT
     Dosage: 50MG PER DAY
     Dates: start: 20021122, end: 20021126
  3. CYCLOSPORINE [Suspect]
     Indication: IMMUNOSUPPRESSION
     Dosage: 170MG PER DAY
     Dates: start: 20021125, end: 20021128
  4. METHOTREXATE [Suspect]
     Indication: IMMUNOSUPPRESSION
     Dosage: 17MG PER DAY
     Dates: start: 20021130, end: 20021205
  5. LENOGRASTIM [Concomitant]
     Dates: start: 20021128, end: 20021216
  6. CEFPIROME SULPHATE [Concomitant]
  7. MINOCYCLINE HCL [Concomitant]
  8. FLUCONAZOLE [Concomitant]
  9. MEROPENEM TRIHYDRATE [Concomitant]
  10. IMMUNE GLOBULIN INTRAVENOUS (HUMAN) [Concomitant]
  11. DOPAMINE HYDROCHLORIDE [Concomitant]
  12. FUROSEMIDE [Concomitant]
  13. ACYCLOVIR [Concomitant]
  14. ALLOPURINOL [Concomitant]
  15. CLONAZEPAM [Concomitant]
  16. ANTIBIOTIC RESISTANT LACTIC ACID BACTERIAE [Concomitant]

REACTIONS (9)
  - BLOOD CREATININE INCREASED [None]
  - CATHETER RELATED COMPLICATION [None]
  - DIALYSIS [None]
  - DRUG LEVEL INCREASED [None]
  - DYSPHAGIA [None]
  - INFUSION SITE INFECTION [None]
  - MULTI-ORGAN FAILURE [None]
  - RENAL FAILURE ACUTE [None]
  - TOXIC EPIDERMAL NECROLYSIS [None]
